FAERS Safety Report 16625344 (Version 1)
Quarter: 2019Q3

REPORT INFORMATION
  Report Type: Spontaneous
  Country: CN (occurrence: CN)
  Receive Date: 20190724
  Receipt Date: 20190724
  Transmission Date: 20191004
  Serious: Yes (Other)
  Sender: FDA-Public Use
  Company Number: CN-PFIZER INC-2019313305

PATIENT
  Age: 36 Year
  Sex: Male
  Weight: 78 kg

DRUGS (5)
  1. VORICONAZOLE. [Suspect]
     Active Substance: VORICONAZOLE
     Dosage: 200 MG, 2X/DAY, Q 12H, PO
     Route: 048
     Dates: start: 20171023, end: 20171024
  2. VORICONAZOLE. [Suspect]
     Active Substance: VORICONAZOLE
     Dosage: 200 MG, 2X/DAY , Q 12 H, IVGTT
     Route: 042
     Dates: start: 20171015, end: 20171017
  3. IMIPENEM AND CILASTATIN [Concomitant]
     Active Substance: CILASTATIN SODIUM\IMIPENEM
     Indication: PNEUMONIA
     Dosage: 0.5 G, 3X/DAY ((1:1) 0.5 G, Q 6 H, IVGTT)
     Route: 042
     Dates: start: 20171014
  4. VORICONAZOLE. [Suspect]
     Active Substance: VORICONAZOLE
     Indication: PNEUMONIA
     Dosage: 300 MG, 2X/DAY, Q 12 H. IVGTT
     Route: 042
     Dates: start: 20171014, end: 20171015
  5. VORICONAZOLE. [Suspect]
     Active Substance: VORICONAZOLE
     Indication: PNEUMONIA
     Dosage: 150 MG, 2X/DAY, Q 12 H
     Route: 048
     Dates: start: 20171017, end: 20171023

REACTIONS (11)
  - Hallucination [Recovering/Resolving]
  - Neurological symptom [Recovering/Resolving]
  - Visual impairment [Recovering/Resolving]
  - Vitreous floaters [Recovering/Resolving]
  - Tremor [Recovering/Resolving]
  - Product use in unapproved indication [Unknown]
  - Off label use [Unknown]
  - Chest discomfort [Recovering/Resolving]
  - Electrolyte imbalance [Recovering/Resolving]
  - Therapeutic response decreased [Unknown]
  - Malaise [Recovering/Resolving]

NARRATIVE: CASE EVENT DATE: 201710
